FAERS Safety Report 8020347-X (Version None)
Quarter: 2012Q1

REPORT INFORMATION
  Report Type: 
  Country: None (occurrence: None)
  Receive Date: 20120103
  Receipt Date: 20110927
  Transmission Date: 20120608
  Serious: Yes (Death, Hospitalization, Other)
  Sender: FDA-Public Use
  Company Number: TW-CELGENEUS-153-21880-11070232

PATIENT
  Sex: Male
  Weight: 50 kg

DRUGS (18)
  1. PREDNISOLONE [Concomitant]
     Dosage: 5 MILLIGRAM
     Route: 065
     Dates: start: 20110701, end: 20110706
  2. ISOSORBIDE DINITRATE [Concomitant]
     Indication: OSTEOPOROSIS
     Route: 065
  3. MAGNESIUM OXIDE [Concomitant]
     Indication: CONSTIPATION
     Dosage: 500 MILLIGRAM
     Route: 065
     Dates: start: 20110516, end: 20110529
  4. DEXAMETHASONE [Concomitant]
     Indication: MULTIPLE MYELOMA
     Dosage: 16 MILLIGRAM
     Route: 065
     Dates: start: 20110603
  5. DEXAMETHASONE [Concomitant]
     Dosage: 16 MILLIGRAM
     Route: 065
     Dates: start: 20110706, end: 20110712
  6. FLURBIPROFEN [Concomitant]
     Indication: OSTEOPOROSIS
     Route: 065
     Dates: start: 20081125
  7. ISOSORBIDE DINITRATE [Concomitant]
     Indication: ANGINA PECTORIS
     Dosage: 5 MILLIGRAM
     Route: 065
     Dates: start: 20070215, end: 20110630
  8. ISOSORBIDE DINITRATE [Concomitant]
     Route: 065
     Dates: start: 20080708, end: 20110630
  9. HALDOL [Concomitant]
     Route: 065
     Dates: start: 20110720
  10. ISOPRIDE [Concomitant]
     Dosage: 15 MILLIGRAM
     Route: 065
     Dates: start: 20110512, end: 20110514
  11. FLURBIPROFEN [Concomitant]
     Route: 065
     Dates: start: 20071218, end: 20110725
  12. REVLIMID [Suspect]
     Indication: MULTIPLE MYELOMA
     Dosage: 10 MILLIGRAM
     Route: 048
     Dates: start: 20110603, end: 20110621
  13. ULTRACET [Concomitant]
     Indication: OSTEOPOROSIS
     Route: 065
     Dates: start: 20110329
  14. ALFUZOSIN HCL [Concomitant]
     Dosage: 10 MILLIGRAM
     Route: 065
     Dates: start: 20110311, end: 20110617
  15. ULTRACET [Concomitant]
     Indication: BONE PAIN
     Dosage: 2 DOSAGE FORMS
     Route: 065
     Dates: start: 20070417, end: 20110727
  16. REVLIMID [Suspect]
     Dosage: 10 MILLIGRAM
     Route: 048
     Dates: start: 20110706, end: 20110713
  17. PREDNISOLONE [Concomitant]
     Indication: MULTIPLE MYELOMA
     Dosage: 5 MILLIGRAM
     Route: 065
     Dates: start: 20110311
  18. LACTULOSE [Concomitant]
     Indication: CONSTIPATION
     Dosage: 60 MILLILITER
     Route: 065
     Dates: start: 20110512, end: 20110514

REACTIONS (5)
  - CACHEXIA [None]
  - PNEUMONIA [None]
  - COLITIS ISCHAEMIC [None]
  - SEPTIC SHOCK [None]
  - MALNUTRITION [None]
